FAERS Safety Report 8239916-7 (Version None)
Quarter: 2012Q1

REPORT INFORMATION
  Report Type: 
  Country: None (occurrence: None)
  Receive Date: 20120328
  Receipt Date: 20120321
  Transmission Date: 20120608
  Serious: Yes (Other)
  Sender: FDA-Public Use
  Company Number: GR-AMGEN-GRCSP2012008749

PATIENT
  Age: 74 Year
  Sex: Female
  Weight: 62 kg

DRUGS (6)
  1. OXALIPLATIN [Concomitant]
     Dosage: UNK
     Route: 042
     Dates: start: 20120302
  2. XELODA [Concomitant]
  3. OXALIPLATIN [Concomitant]
     Route: 042
  4. VECTIBIX [Suspect]
     Dosage: 400 MG, UNK
     Route: 042
     Dates: start: 20111222, end: 20120201
  5. VECTIBIX [Suspect]
     Indication: COLON CANCER
     Dosage: 400 MG, UNK
     Route: 042
     Dates: start: 20110921, end: 20111109
  6. OXALIPLATIN [Concomitant]
     Route: 042

REACTIONS (10)
  - BACK PAIN [None]
  - CONJUNCTIVITIS [None]
  - ORAL HERPES [None]
  - DRY MOUTH [None]
  - BLOOD PRESSURE DECREASED [None]
  - PALMAR-PLANTAR ERYTHRODYSAESTHESIA SYNDROME [None]
  - HYPERHIDROSIS [None]
  - TACHYCARDIA [None]
  - DRY SKIN [None]
  - MUCOSAL INFLAMMATION [None]
